FAERS Safety Report 6091533-3 (Version None)
Quarter: 2009Q1

REPORT INFORMATION
  Report Type: 
  Country: None (occurrence: None)
  Receive Date: 20090225
  Receipt Date: 20090217
  Transmission Date: 20090719
  Serious: Yes (Other)
  Sender: FDA-Public Use
  Company Number: PHEH2009US01790

PATIENT

DRUGS (1)
  1. RECLAST [Suspect]
     Dosage: 5 MG/YEAR

REACTIONS (1)
  - OSTEONECROSIS [None]
